FAERS Safety Report 21548173 (Version 1)
Quarter: 2022Q4

REPORT INFORMATION
  Report Type: Report from Study
  Country: US (occurrence: US)
  Receive Date: 20221103
  Receipt Date: 20221103
  Transmission Date: 20230112
  Serious: No
  Sender: FDA-Public Use
  Company Number: US-ABBVIE-4139034

PATIENT
  Age: 50 Year
  Sex: Female

DRUGS (1)
  1. RINVOQ [Suspect]
     Active Substance: UPADACITINIB
     Indication: Psoriatic arthropathy
     Dosage: FORM STRENGTH: 15 MILLIGRAM?DOSE ONE 15 MG TABLET BY MOUTH DAILY
     Route: 048
     Dates: start: 20220914

REACTIONS (3)
  - Herpes zoster [Unknown]
  - Psoriatic arthropathy [Unknown]
  - Dry skin [Unknown]

NARRATIVE: CASE EVENT DATE: 20220901
